FAERS Safety Report 8716273 (Version 2)
Quarter: 2013Q4

REPORT INFORMATION
  Report Type: Report from Study
  Country: US (occurrence: US)
  Receive Date: 20120810
  Receipt Date: 20131106
  Transmission Date: 20140711
  Serious: Yes (Disabling, Other)
  Sender: FDA-Public Use
  Company Number: US-009507513-1208USA001893

PATIENT
  Sex: Male

DRUGS (4)
  1. PEG-INTRON [Suspect]
     Indication: HEPATITIS C
     Dosage: UNK
     Dates: start: 20061201, end: 20070801
  2. PEG-INTRON [Suspect]
     Dosage: UNK
     Dates: start: 20080101, end: 20080701
  3. REBETOL [Suspect]
     Indication: HEPATITIS C
     Dosage: UNK
     Dates: start: 20061201, end: 20070801
  4. REBETOL [Suspect]
     Dosage: UNK
     Dates: start: 20080101, end: 20080701

REACTIONS (11)
  - Polyneuropathy [Not Recovered/Not Resolved]
  - Viral load increased [Unknown]
  - Infection [Unknown]
  - Hyperhidrosis [Unknown]
  - Vomiting [Unknown]
  - Diarrhoea [Unknown]
  - Hallucination, visual [Unknown]
  - Treatment failure [Unknown]
  - Paranoia [Unknown]
  - Contusion [Unknown]
  - Joint stiffness [Unknown]
